FAERS Safety Report 14073051 (Version 1)
Quarter: 2017Q4

REPORT INFORMATION
  Report Type: Spontaneous
  Country: DE (occurrence: DE)
  Receive Date: 20171011
  Receipt Date: 20171011
  Transmission Date: 20180321
  Serious: Yes (Hospitalization, Other)
  Sender: FDA-Public Use
  Company Number: DE-TORRENT-00007198

PATIENT
  Age: 79 Year
  Sex: Female

DRUGS (2)
  1. DABIGATRAN [Suspect]
     Active Substance: DABIGATRAN
  2. CLOPIDOGREL [Suspect]
     Active Substance: CLOPIDOGREL BISULFATE

REACTIONS (5)
  - Haemorrhage [Not Recovered/Not Resolved]
  - Ileus paralytic [Unknown]
  - Peritonitis [Unknown]
  - Coagulopathy [Unknown]
  - Rectal perforation [Unknown]
